FAERS Safety Report 8979074 (Version 1)
Quarter: 2012Q4

REPORT INFORMATION
  Report Type: Report from Study
  Country: CO (occurrence: CO)
  Receive Date: 20121221
  Receipt Date: 20121221
  Transmission Date: 20130627
  Serious: Yes (Hospitalization)
  Sender: FDA-Public Use
  Company Number: CO-ASTRAZENECA-2012SE94220

PATIENT
  Age: 26463 Day
  Sex: Male

DRUGS (12)
  1. AZD6140 [Suspect]
     Indication: CORONARY ARTERY DISEASE
     Route: 048
     Dates: start: 20110919, end: 20120108
  2. AZD6140 [Suspect]
     Indication: CORONARY ARTERY DISEASE
     Route: 048
     Dates: start: 20120128, end: 20120518
  3. AZD6140 [Suspect]
     Indication: CORONARY ARTERY DISEASE
     Route: 048
     Dates: start: 20120521
  4. METOPROLOL [Concomitant]
     Indication: CORONARY ARTERY DISEASE
     Route: 048
  5. LOVASTATIN [Concomitant]
     Indication: DYSLIPIDAEMIA
     Route: 048
  6. LOVASTATIN [Concomitant]
     Indication: CORONARY ARTERY DISEASE
     Route: 048
  7. ENALAPRIL [Concomitant]
     Indication: HYPERTENSION
     Route: 048
  8. ENALAPRIL [Concomitant]
     Indication: CORONARY ARTERY DISEASE
     Route: 048
  9. ASA [Concomitant]
     Route: 048
     Dates: end: 20111005
  10. ASA [Concomitant]
     Route: 048
     Dates: start: 20111006, end: 20111006
  11. ASA [Concomitant]
     Route: 048
     Dates: start: 20111007, end: 20120107
  12. ASA [Concomitant]
     Route: 048
     Dates: start: 20120208, end: 20120518

REACTIONS (1)
  - Anaemia [Recovered/Resolved]
